FAERS Safety Report 15534801 (Version 1)
Quarter: 2018Q4

REPORT INFORMATION
  Report Type: Spontaneous
  Country: US (occurrence: US)
  Receive Date: 20181022
  Receipt Date: 20181022
  Transmission Date: 20190205
  Serious: Yes (Other)
  Sender: FDA-Public Use
  Company Number: US-TEVA-2018-US-965177

PATIENT
  Sex: Female

DRUGS (1)
  1. TRAMATAB [TRAMADOL] [Suspect]
     Active Substance: TRAMADOL
     Route: 065

REACTIONS (2)
  - Gait inability [Unknown]
  - Asthenia [Unknown]
